FAERS Safety Report 7158579-5 (Version None)
Quarter: 2010Q4

REPORT INFORMATION
  Report Type: 
  Country: None (occurrence: None)
  Receive Date: 20101214
  Receipt Date: 20100525
  Transmission Date: 20110411
  Serious: No
  Sender: FDA-Public Use
  Company Number: US-ASTRAZENECA-2010SE24000

PATIENT
  Sex: Male

DRUGS (2)
  1. CRESTOR [Suspect]
     Indication: HYPERCHOLESTEROLAEMIA
     Route: 048
     Dates: start: 20080101
  2. CRESTOR [Suspect]
     Route: 048

REACTIONS (3)
  - BLOOD CHOLESTEROL DECREASED [None]
  - LOW DENSITY LIPOPROTEIN DECREASED [None]
  - THERAPY REGIMEN CHANGED [None]
